FAERS Safety Report 8244467-X (Version None)
Quarter: 2012Q1

REPORT INFORMATION
  Report Type: 
  Country: None (occurrence: None)
  Receive Date: 20120329
  Receipt Date: 20120319
  Transmission Date: 20120608
  Serious: Yes (Other)
  Sender: FDA-Public Use
  Company Number: DK-FRI-1000025743

PATIENT
  Sex: Female
  Weight: 70 kg

DRUGS (2)
  1. CITALOPRAM HYDROBROMIDE [Suspect]
     Indication: DEPRESSION
     Dosage: 20 MG
     Dates: start: 20110408, end: 20110508
  2. CITALOPRAM HYDROBROMIDE [Suspect]
     Dosage: 30 MG
     Dates: start: 20110509

REACTIONS (3)
  - ABORTION MISSED [None]
  - MATERNAL EXPOSURE DURING PREGNANCY [None]
  - CERVIX HAEMORRHAGE UTERINE [None]
